FAERS Safety Report 7875840-7 (Version None)
Quarter: 2011Q4

REPORT INFORMATION
  Report Type: 
  Country: None (occurrence: None)
  Receive Date: 20111031
  Receipt Date: 20111020
  Transmission Date: 20120403
  Serious: Yes (Other)
  Sender: FDA-Public Use
  Company Number: PHFR2011GB05671

PATIENT
  Sex: Female
  Weight: 90 kg

DRUGS (1)
  1. CLOZARIL [Suspect]
     Indication: PERSONALITY DISORDER
     Dosage: 325 MG/DAY
     Route: 048
     Dates: start: 20070301

REACTIONS (6)
  - SEPSIS [None]
  - BLOOD COUNT ABNORMAL [None]
  - URINARY TRACT INFECTION [None]
  - INFLUENZA LIKE ILLNESS [None]
  - BODY TEMPERATURE INCREASED [None]
  - EAR INFECTION [None]
